FAERS Safety Report 23693133 (Version 1)
Quarter: 2024Q2

REPORT INFORMATION
  Report Type: Spontaneous
  Country: US (occurrence: US)
  Receive Date: 20240401
  Receipt Date: 20240401
  Transmission Date: 20240716
  Serious: No
  Sender: FDA-Public Use
  Company Number: US-TEVA-VS-3158377

PATIENT
  Age: 30 Year
  Sex: Male

DRUGS (1)
  1. UZEDY [Suspect]
     Active Substance: RISPERIDONE
     Route: 065

REACTIONS (4)
  - Injection site nodule [Recovered/Resolved]
  - Drug ineffective [Unknown]
  - Pruritus [Unknown]
  - Hypomania [Unknown]
